FAERS Safety Report 20183048 (Version 2)
Quarter: 2022Q1

REPORT INFORMATION
  Report Type: Spontaneous
  Country: IN (occurrence: IN)
  Receive Date: 20211214
  Receipt Date: 20220131
  Transmission Date: 20220423
  Serious: Yes (Death)
  Sender: FDA-Public Use
  Company Number: IN-PFIZER INC-202101707170

PATIENT
  Age: 63 Year
  Sex: Male

DRUGS (1)
  1. SUTENT [Suspect]
     Active Substance: SUNITINIB MALATE
     Indication: Metastatic renal cell carcinoma
     Dosage: 50 MG, 1X/DAY
     Dates: start: 20201028, end: 20210801

REACTIONS (5)
  - Myocardial infarction [Fatal]
  - Neoplasm progression [Fatal]
  - Decreased appetite [Unknown]
  - Hiccups [Unknown]
  - Vomiting [Unknown]

NARRATIVE: CASE EVENT DATE: 20210730
